FAERS Safety Report 4740793-7 (Version None)
Quarter: 2005Q3

REPORT INFORMATION
  Report Type: 
  Country: None (occurrence: None)
  Receive Date: 20050810
  Receipt Date: 20050729
  Transmission Date: 20060218
  Serious: Yes (Other)
  Sender: FDA-Public Use
  Company Number: US-GLAXOSMITHKLINE-A0568244A

PATIENT
  Age: 53 Year
  Sex: Female
  Weight: 52 kg

DRUGS (4)
  1. NICORETTE [Suspect]
     Indication: SMOKING CESSATION THERAPY
     Route: 048
     Dates: start: 20000301, end: 20041201
  2. NICORETTE [Suspect]
     Indication: SMOKING CESSATION THERAPY
     Route: 048
     Dates: start: 20000301, end: 20041201
  3. ALBUTEROL [Concomitant]
  4. ANTIBIOTIC [Concomitant]

REACTIONS (3)
  - DIVERTICULITIS [None]
  - OPTIC NEURITIS [None]
  - URINARY INCONTINENCE [None]
